FAERS Safety Report 24165448 (Version 1)
Quarter: 2024Q3

REPORT INFORMATION
  Report Type: Spontaneous
  Country: FR (occurrence: FR)
  Receive Date: 20240802
  Receipt Date: 20240802
  Transmission Date: 20241017
  Serious: Yes (Hospitalization, Other)
  Sender: AUROBINDO
  Company Number: FR-AFSSAPS-PA2024001311

PATIENT
  Age: 71 Year
  Sex: Female
  Weight: 50 kg

DRUGS (7)
  1. CEFTRIAXONE [Suspect]
     Active Substance: CEFTRIAXONE\CEFTRIAXONE SODIUM
     Indication: Necrotising fasciitis
     Dosage: UNK
     Route: 042
     Dates: start: 20240613, end: 20240613
  2. METRONIDAZOLE [Suspect]
     Active Substance: METRONIDAZOLE
     Indication: Necrotising fasciitis
     Dosage: UNK
     Route: 042
     Dates: start: 20240613, end: 20240613
  3. CEFOTAXIME SODIUM [Suspect]
     Active Substance: CEFOTAXIME SODIUM
     Indication: Necrotising fasciitis
     Dosage: UNK
     Route: 042
     Dates: start: 20240614, end: 20240617
  4. ORNIDAZOLE [Suspect]
     Active Substance: ORNIDAZOLE
     Indication: Necrotising fasciitis
     Dosage: UNK
     Route: 042
     Dates: start: 20240614, end: 20240618
  5. AUGMENTIN [Concomitant]
     Active Substance: AMOXICILLIN\CLAVULANATE POTASSIUM
     Indication: Necrotising fasciitis
     Dosage: UNK
     Route: 065
     Dates: start: 20240612, end: 20240612
  6. AMOXICILLIN [Concomitant]
     Active Substance: AMOXICILLIN
     Indication: Necrotising fasciitis
     Dosage: UNK
     Route: 042
     Dates: start: 20240618
  7. CLINDAMYCIN [Concomitant]
     Active Substance: CLINDAMYCIN
     Indication: Necrotising fasciitis
     Dosage: UNK
     Route: 042
     Dates: start: 20240619

REACTIONS (3)
  - Eosinophilia [Recovering/Resolving]
  - Rash maculo-papular [Recovering/Resolving]
  - Liver injury [Recovering/Resolving]

NARRATIVE: CASE EVENT DATE: 20240617
